FAERS Safety Report 18909037 (Version 1)
Quarter: 2021Q1

REPORT INFORMATION
  Report Type: Other
  Country: NL (occurrence: NL)
  Receive Date: 20210218
  Receipt Date: 20210218
  Transmission Date: 20210420
  Serious: Yes (Other)
  Sender: FDA-Public Use
  Company Number: NL-STRIDES ARCOLAB LIMITED-2021SP001994

PATIENT
  Sex: Male
  Weight: 70 kg

DRUGS (1)
  1. GABAPENTIN. [Suspect]
     Active Substance: GABAPENTIN
     Indication: ESSENTIAL TREMOR
     Dosage: 300 MILLIGRAM, EVERY 8 HRS
     Route: 065
     Dates: start: 20210107, end: 20210115

REACTIONS (1)
  - Loss of consciousness [Recovered/Resolved]
